FAERS Safety Report 23653063 (Version 1)
Quarter: 2024Q1

REPORT INFORMATION
  Report Type: Spontaneous
  Country: ES (occurrence: ES)
  Receive Date: 20240320
  Receipt Date: 20240320
  Transmission Date: 20240410
  Serious: Yes (Other)
  Sender: FDA-Public Use
  Company Number: None

PATIENT
  Age: 33 Year
  Sex: Female

DRUGS (15)
  1. OLANZAPINE [Suspect]
     Active Substance: OLANZAPINE
     Indication: Bipolar disorder
     Dosage: DAILY DOSE: 10 MILLIGRAM
     Route: 002
     Dates: start: 20231227, end: 20240104
  2. OLANZAPINE [Suspect]
     Active Substance: OLANZAPINE
     Indication: Bipolar disorder
     Dosage: BID?DAILY DOSE: 20 MILLIGRAM
     Route: 002
     Dates: start: 20240105, end: 20240110
  3. OLANZAPINE [Suspect]
     Active Substance: OLANZAPINE
     Indication: Bipolar disorder
     Dosage: EVERY 8 HOURS?DAILY DOSE: 15 MILLIGRAM
     Route: 002
     Dates: start: 20240111, end: 20240115
  4. OLANZAPINE [Suspect]
     Active Substance: OLANZAPINE
     Indication: Bipolar disorder
     Dosage: BID?DAILY DOSE: 10 MILLIGRAM
     Route: 002
     Dates: start: 20240116, end: 20240117
  5. CLONAZEPAM [Suspect]
     Active Substance: CLONAZEPAM
     Indication: Bipolar disorder
     Dosage: TID (EVERY 8 HOURS)?DAILY DOSE: 6 MILLIGRAM
     Route: 048
     Dates: start: 20231223, end: 20240111
  6. CLONAZEPAM [Suspect]
     Active Substance: CLONAZEPAM
     Indication: Bipolar disorder
     Dosage: TID (EVERY 8 HOURS)?DAILY DOSE: 3 MILLIGRAM
     Route: 048
     Dates: start: 20240112, end: 20240115
  7. CLONAZEPAM [Suspect]
     Active Substance: CLONAZEPAM
     Indication: Bipolar disorder
     Dosage: TID (EVERY 8 HOURS)?DAILY DOSE: 1.5 MILLIGRAM
     Route: 048
     Dates: start: 20240115, end: 20240116
  8. HALOPERIDOL [Suspect]
     Active Substance: HALOPERIDOL
     Indication: Bipolar disorder
     Route: 030
     Dates: start: 20231224, end: 20240104
  9. VALPROATE SODIUM [Suspect]
     Active Substance: VALPROATE SODIUM
     Indication: Bipolar disorder
     Dosage: DAILY DOSE: 500 MILLIGRAM
     Route: 048
     Dates: start: 20231228, end: 20240101
  10. VALPROATE SODIUM [Suspect]
     Active Substance: VALPROATE SODIUM
     Indication: Bipolar disorder
     Dosage: DAILY DOSE: 800 MILLIGRAM
     Route: 048
     Dates: start: 20240102, end: 20240104
  11. VALPROATE SODIUM [Suspect]
     Active Substance: VALPROATE SODIUM
     Indication: Bipolar disorder
     Dosage: BID?DAILY DOSE: 1000 MILLIGRAM
     Route: 048
     Dates: start: 20240105, end: 20240108
  12. VALPROATE SODIUM [Suspect]
     Active Substance: VALPROATE SODIUM
     Indication: Bipolar disorder
     Dosage: TID (EVERY 8 HOURS)?DAILY DOSE: 1500 MILLI-INTERNATIONAL UNIT
     Route: 048
     Dates: start: 20240109, end: 20240109
  13. VALPROATE SODIUM [Suspect]
     Active Substance: VALPROATE SODIUM
     Indication: Bipolar disorder
     Dosage: BID?DAILY DOSE: 1000 MILLIGRAM
     Route: 048
     Dates: start: 20240110
  14. ABILIFY MAINTENA [Suspect]
     Active Substance: ARIPIPRAZOLE
     Indication: Bipolar disorder
     Dosage: PROLONGED-RELEASE SUSPENSION FOR INJECTION?DAILY DOSE: 600 MILLIGRAM
     Route: 030
     Dates: start: 20231221, end: 20231221
  15. ENOXAPARIN SODIUM [Concomitant]
     Active Substance: ENOXAPARIN SODIUM
     Indication: COVID-19
     Dosage: DAILY DOSE: 40 MILLI-INTERNATIONAL UNIT
     Route: 058
     Dates: start: 20240107, end: 20240111

REACTIONS (1)
  - Neutropenia [Recovered/Resolved]

NARRATIVE: CASE EVENT DATE: 20240109
